FAERS Safety Report 12092479 (Version 1)
Quarter: 2016Q1

REPORT INFORMATION
  Report Type: Spontaneous
  Country: US (occurrence: None)
  Receive Date: 20160217
  Receipt Date: 20160217
  Transmission Date: 20160526
  Serious: No
  Sender: FDA-Public Use
  Company Number: None

PATIENT
  Age: 5 Year
  Sex: Male
  Weight: 17.3 kg

DRUGS (2)
  1. MELPHALAN [Suspect]
     Active Substance: MELPHALAN
     Dates: end: 20140116
  2. BUSULFAN [Suspect]
     Active Substance: BUSULFAN
     Dates: end: 20140114

REACTIONS (7)
  - Aspartate aminotransferase increased [None]
  - Thrombocytopenia [None]
  - Gastritis [None]
  - Blood albumin decreased [None]
  - Liver function test increased [None]
  - Gastrointestinal haemorrhage [None]
  - Ascites [None]

NARRATIVE: CASE EVENT DATE: 20140206
